FAERS Safety Report 8853185 (Version 2)
Quarter: 2012Q4

REPORT INFORMATION
  Report Type: 
  Country: US (occurrence: US)
  Receive Date: 20121022
  Receipt Date: 20121114
  Transmission Date: 20130627
  Serious: No
  Sender: FDA-Public Use
  Company Number: US-009507513-1210USA001049

PATIENT
  Sex: Male

DRUGS (3)
  1. PEG-INTRON [Suspect]
     Indication: HEPATITIS C
     Dosage: Redipen
     Dates: start: 20120831
  2. RIBAVIRIN [Suspect]
     Dosage: UNK
     Dates: start: 20120831
  3. VICTRELIS [Suspect]
     Dosage: UNK
     Dates: start: 20120928

REACTIONS (3)
  - Eating disorder [Unknown]
  - Dysgeusia [Unknown]
  - Decreased appetite [Unknown]
